FAERS Safety Report 5954219-9 (Version None)
Quarter: 2008Q4

REPORT INFORMATION
  Report Type: 
  Country: None (occurrence: None)
  Receive Date: 20081113
  Receipt Date: 20081113
  Transmission Date: 20090506
  Serious: Yes (Life-Threatening)
  Sender: FDA-Public Use
  Company Number: None

PATIENT
  Sex: Female
  Weight: 68.0396 kg

DRUGS (2)
  1. VENTOLIN HFA [Suspect]
     Indication: ASTHMA
     Dosage: 18 G -200 METERED DOSES 2 PUFF EVERY 4 HRS. OR AS NEEDED
     Dates: start: 20080501
  2. VENTOLIN HFA [Suspect]
     Indication: MULTIPLE ALLERGIES
     Dosage: 18 G -200 METERED DOSES 2 PUFF EVERY 4 HRS. OR AS NEEDED
     Dates: start: 20080501

REACTIONS (2)
  - DEVICE MALFUNCTION [None]
  - DRUG EFFECT DECREASED [None]
